FAERS Safety Report 25263855 (Version 1)
Quarter: 2025Q2

REPORT INFORMATION
  Report Type: Spontaneous
  Country: US (occurrence: US)
  Receive Date: 20250502
  Receipt Date: 20250502
  Transmission Date: 20250716
  Serious: No
  Sender: BAYER HEALTHCARE PHARMACEUTICALS INC.
  Company Number: US-BAYER-2025A057711

PATIENT
  Sex: Female

DRUGS (2)
  1. MIRENA [Suspect]
     Active Substance: LEVONORGESTREL
     Indication: Contraception
     Dosage: 20?G/DAY
     Route: 015
     Dates: start: 201902
  2. RASUVO [Concomitant]
     Active Substance: METHOTREXATE SODIUM
     Route: 042

REACTIONS (3)
  - Abdominal pain lower [None]
  - Loss of personal independence in daily activities [None]
  - Gait disturbance [None]
